FAERS Safety Report 4890057-6 (Version None)
Quarter: 2006Q1

REPORT INFORMATION
  Report Type: 
  Country: None (occurrence: None)
  Receive Date: 20060120
  Receipt Date: 20051220
  Transmission Date: 20060701
  Serious: Yes (Hospitalization)
  Sender: FDA-Public Use
  Company Number: 221148

PATIENT
  Age: 62 Year
  Sex: Male

DRUGS (10)
  1. AVASTIN [Suspect]
     Indication: COLON CANCER
     Dosage: 425 MG, 1/WEEK, INTRAVENOUS
     Route: 042
     Dates: start: 20050620
  2. OXALIPLATIN(OXALIPLATIN) [Suspect]
     Indication: COLON CANCER
  3. FOLIC ACID [Suspect]
     Indication: COLON CANCER
  4. FLUOROURACIL [Suspect]
     Indication: COLON CANCER
     Dates: start: 20050620
  5. VANCOMYCIN HYDROCHLORIDE [Concomitant]
  6. PANTOPRAZOLE SODIUM [Concomitant]
  7. BISOPROLOL (BISOPROLOL) [Concomitant]
  8. RIOPAN (MAGALDRATE) [Concomitant]
  9. CIPROFLOXACINE (CIPROFLOXACIN) [Concomitant]
  10. DOXYCILIN (DOXYCYCLINE HYCLATE) [Concomitant]

REACTIONS (18)
  - ARTHRALGIA [None]
  - BLOOD CULTURE POSITIVE [None]
  - BURNING SENSATION [None]
  - CULTURE POSITIVE [None]
  - DEVICE RELATED INFECTION [None]
  - DIARRHOEA [None]
  - DIZZINESS [None]
  - GENERAL PHYSICAL HEALTH DETERIORATION [None]
  - HAEMORRHAGE [None]
  - LEUKOPENIA [None]
  - MICROANGIOPATHIC HAEMOLYTIC ANAEMIA [None]
  - NASAL DISORDER [None]
  - ODYNOPHAGIA [None]
  - OEDEMA PERIPHERAL [None]
  - STAPHYLOCOCCAL INFECTION [None]
  - THROAT IRRITATION [None]
  - THROMBOCYTOPENIA [None]
  - VASCULITIS [None]
